FAERS Safety Report 7741276-2 (Version None)
Quarter: 2011Q3

REPORT INFORMATION
  Report Type: 
  Country: None (occurrence: None)
  Receive Date: 20110909
  Receipt Date: 20110906
  Transmission Date: 20111222
  Serious: Yes (Other)
  Sender: FDA-Public Use
  Company Number: DE-GILEAD-2011-0043574

PATIENT
  Sex: Male
  Weight: 82 kg

DRUGS (7)
  1. TRUVADA [Suspect]
     Indication: HIV INFECTION
     Dosage: MORNING
     Route: 048
     Dates: start: 20091001
  2. BISOBETA [Concomitant]
     Dosage: MORNING
  3. ALENDROMED [Concomitant]
  4. CALCIVIT D FORTE [Concomitant]
     Dosage: MORNING
  5. ENALAPRIL MALEATE [Concomitant]
     Dosage: 1/2 PER DAY MORNING
  6. NORVIR [Concomitant]
     Dosage: MORNING
  7. PREZISTA [Concomitant]
     Dosage: MORNING

REACTIONS (2)
  - OSTEOPOROSIS [None]
  - BONE PAIN [None]
